FAERS Safety Report 13522417 (Version 1)
Quarter: 2017Q2

REPORT INFORMATION
  Report Type: Spontaneous
  Country: US (occurrence: US)
  Receive Date: 20170508
  Receipt Date: 20170508
  Transmission Date: 20170830
  Serious: No
  Sender: FDA-Public Use
  Company Number: US-OTSUKA-2017_009275

PATIENT
  Sex: Female

DRUGS (1)
  1. ONZETRA [Suspect]
     Active Substance: SUMATRIPTAN SUCCINATE
     Indication: MIGRAINE
     Dosage: 22 MG, (11 MG IN EACH NOSTRIL AS NEEDED)
     Route: 045

REACTIONS (2)
  - Wrong technique in device usage process [Unknown]
  - Headache [Recovered/Resolved]
